FAERS Safety Report 4441467-2 (Version None)
Quarter: 2004Q3

REPORT INFORMATION
  Report Type: 
  Country: None (occurrence: None)
  Receive Date: 20040728
  Receipt Date: 20040513
  Transmission Date: 20050211
  Serious: No
  Sender: FDA-Public Use
  Company Number: USA040464090

PATIENT
  Age: 7 Year
  Sex: Male
  Weight: 21 kg

DRUGS (2)
  1. STRATTERA [Suspect]
     Indication: ATTENTION DEFICIT/HYPERACTIVITY DISORDER
     Dosage: 40 MG DAY
     Dates: start: 20030101
  2. CONCERTA [Concomitant]

REACTIONS (6)
  - ABDOMINAL PAIN UPPER [None]
  - HEADACHE [None]
  - MALAISE [None]
  - PRESCRIBED OVERDOSE [None]
  - SOMNOLENCE [None]
  - VOMITING [None]
